FAERS Safety Report 21140419 (Version 2)
Quarter: 2022Q3

REPORT INFORMATION
  Report Type: Spontaneous
  Country: ES (occurrence: ES)
  Receive Date: 20220728
  Receipt Date: 20220803
  Transmission Date: 20221026
  Serious: Yes (Life-Threatening, Hospitalization, Other)
  Sender: FDA-Public Use
  Company Number: ES-LABALTER-202202209

PATIENT
  Age: 13 Year
  Sex: Female

DRUGS (3)
  1. DULOXETINE [Suspect]
     Active Substance: DULOXETINE
     Indication: Suicide attempt
     Route: 048
  2. TRAMADOL [Suspect]
     Active Substance: TRAMADOL
     Indication: Suicide attempt
     Route: 048
  3. MORPHINE HYDROCHLORIDE [Suspect]
     Active Substance: MORPHINE HYDROCHLORIDE
     Indication: Suicide attempt
     Dosage: DELAYED RELEASE MORPHINE
     Route: 065

REACTIONS (18)
  - Respiratory depression [Recovered/Resolved]
  - Intentional overdose [Recovered/Resolved]
  - Suicidal ideation [Recovered/Resolved]
  - Depressed level of consciousness [Recovered/Resolved]
  - Off label use [Unknown]
  - Hyporesponsive to stimuli [Recovered/Resolved]
  - Somnolence [Recovered/Resolved]
  - Headache [Recovered/Resolved]
  - Dysuria [Recovered/Resolved]
  - Vomiting [Recovered/Resolved]
  - Abdominal pain [Recovered/Resolved]
  - Cardiac disorder [Unknown]
  - Bradyphrenia [Unknown]
  - Abdominal pain lower [Unknown]
  - Hyperamylasaemia [Unknown]
  - Bradypnoea [Unknown]
  - Miosis [Unknown]
  - Urinary retention [Recovered/Resolved]
